FAERS Safety Report 7620004-5 (Version None)
Quarter: 2011Q3

REPORT INFORMATION
  Report Type: 
  Country: None (occurrence: None)
  Receive Date: 20110719
  Receipt Date: 20110713
  Transmission Date: 20111222
  Serious: Yes (Other)
  Sender: FDA-Public Use
  Company Number: US-PFIZER INC-2011158629

PATIENT
  Sex: Female

DRUGS (5)
  1. METFORMIN HCL [Suspect]
     Dosage: UNK
  2. GLUCOTROL [Suspect]
     Dosage: UNK
  3. SOLOSTAR [Suspect]
     Indication: TYPE 2 DIABETES MELLITUS
     Dosage: UNK
     Dates: start: 20100101
  4. LANTUS [Suspect]
     Indication: TYPE 2 DIABETES MELLITUS
     Dosage: 40 IU, 1X/DAY
     Route: 058
     Dates: start: 20100101
  5. JANUVIA [Suspect]
     Dosage: UNK

REACTIONS (1)
  - DIABETES MELLITUS INADEQUATE CONTROL [None]
